FAERS Safety Report 6509432-9 (Version None)
Quarter: 2009Q4

REPORT INFORMATION
  Report Type: 
  Country: None (occurrence: None)
  Receive Date: 20091222
  Receipt Date: 20091214
  Transmission Date: 20100525
  Serious: Yes (Other)
  Sender: FDA-Public Use
  Company Number: JP-JNJFOC-20090803964

PATIENT
  Sex: Male
  Weight: 42 kg

DRUGS (3)
  1. ITRIZOLE [Suspect]
     Indication: BRONCHOPULMONARY ASPERGILLOSIS
     Route: 048
  2. ITRIZOLE [Suspect]
     Route: 048
  3. ITRIZOLE [Suspect]
     Route: 041

REACTIONS (1)
  - BLOOD CREATINE PHOSPHOKINASE INCREASED [None]
